FAERS Safety Report 15304190 (Version 1)
Quarter: 2018Q3

REPORT INFORMATION
  Report Type: Spontaneous
  Country: US (occurrence: US)
  Receive Date: 20180809
  Receipt Date: 20180809
  Transmission Date: 20181010
  Serious: Yes (Life-Threatening, Hospitalization, Other)
  Sender: FDA-Public Use
  Company Number: None

PATIENT
  Age: 61 Year
  Sex: Male
  Weight: 66.1 kg

DRUGS (1)
  1. FOLOTYN [Suspect]
     Active Substance: PRALATREXATE
     Indication: LYMPHOMA
     Dates: start: 20180713

REACTIONS (3)
  - Rash pruritic [None]
  - Dermatitis bullous [None]
  - Toxic epidermal necrolysis [None]

NARRATIVE: CASE EVENT DATE: 20180720
